FAERS Safety Report 19589175 (Version 1)
Quarter: 2021Q3

REPORT INFORMATION
  Report Type: Other
  Country: CN (occurrence: CN)
  Receive Date: 20210721
  Receipt Date: 20210721
  Transmission Date: 20211014
  Serious: Yes (Death)
  Sender: FDA-Public Use
  Company Number: CN-ROCHE-2872531

PATIENT

DRUGS (1)
  1. RITUXIMAB. [Suspect]
     Active Substance: RITUXIMAB
     Indication: POST TRANSPLANT LYMPHOPROLIFERATIVE DISORDER
     Dosage: DILUTE RITUXIMAB IN 0.9% NORMAL SALINE AND PREPARE A SOLUTION WITH A CONCENTRATION OF 1MG/ML
     Route: 041

REACTIONS (2)
  - Off label use [Unknown]
  - Fungal infection [Fatal]
